FAERS Safety Report 5739388-8 (Version None)
Quarter: 2008Q2

REPORT INFORMATION
  Report Type: 
  Country: None (occurrence: None)
  Receive Date: 20080515
  Receipt Date: 20080508
  Transmission Date: 20081010
  Serious: Yes (Hospitalization)
  Sender: FDA-Public Use
  Company Number: JP-PFIZER INC-2008029825

PATIENT
  Sex: Female
  Weight: 53 kg

DRUGS (13)
  1. ATARAX [Suspect]
     Indication: SEDATION
     Dosage: TEXT:1 AMPOULE-FREQ:FREQUENCY: QD
     Route: 042
     Dates: start: 20080208, end: 20080208
  2. SOLULACT [Suspect]
     Indication: FLUID REPLACEMENT
     Route: 042
     Dates: start: 20080208, end: 20080210
  3. ELIETEN [Suspect]
     Indication: VOMITING
     Dosage: TEXT:1 AMPOULE-FREQ:FREQUENCY: QD
     Route: 042
  4. LOXONIN [Suspect]
     Indication: PAIN
     Route: 048
  5. ADOFEED [Suspect]
     Indication: PAIN
  6. SOLITA-T3 INJECTION [Concomitant]
     Route: 042
  7. MUCOSTA [Concomitant]
     Route: 048
  8. SOLITA T [Concomitant]
     Dates: start: 20080210, end: 20080210
  9. THIAMINE HCL [Concomitant]
     Route: 042
     Dates: start: 20080210, end: 20080210
  10. RIBOFLAVIN SODIUM PHOSPHATE [Concomitant]
     Route: 042
     Dates: start: 20080210, end: 20080210
  11. HIPYRIDOXIN [Concomitant]
     Route: 042
     Dates: start: 20080210, end: 20080210
  12. PANTHENOL [Concomitant]
     Route: 042
     Dates: start: 20080210, end: 20080210
  13. ASCORBIC ACID [Concomitant]
     Route: 042
     Dates: start: 20080210, end: 20080210

REACTIONS (1)
  - GENERALISED ERYTHEMA [None]
